FAERS Safety Report 19130318 (Version 2)
Quarter: 2021Q2

REPORT INFORMATION
  Report Type: Report from Study
  Country: US (occurrence: US)
  Receive Date: 20210413
  Receipt Date: 20210618
  Transmission Date: 20210717
  Serious: Yes (Hospitalization)
  Sender: FDA-Public Use
  Company Number: US-ASTRAZENECA-2021A286256

PATIENT
  Age: 53 Year
  Sex: Female

DRUGS (5)
  1. ZOFRAN [Concomitant]
     Active Substance: ONDANSETRON HYDROCHLORIDE
     Indication: NAUSEA
     Dosage: 8 MG, AS REQUIRED
     Route: 048
     Dates: start: 201806
  2. TAS?120 [Suspect]
     Active Substance: FUTIBATINIB
     Indication: BREAST CANCER METASTATIC
     Dosage: 20 MG ONCE DAILY
     Route: 048
     Dates: start: 20200720, end: 20201001
  3. GOSERELIN [Concomitant]
     Active Substance: GOSERELIN
     Indication: BREAST CANCER
     Dosage: 3.6 MG,4 WK
     Dates: start: 20200324
  4. FASLODEX [Suspect]
     Active Substance: FULVESTRANT
     Indication: BREAST CANCER METASTATIC
     Dosage: UNKNOWN
     Route: 030
     Dates: start: 20200720, end: 20210301
  5. TAS?120 [Suspect]
     Active Substance: FUTIBATINIB
     Indication: BREAST CANCER METASTATIC
     Dosage: 16 MG QD
     Route: 048
     Dates: start: 20201002, end: 20210304

REACTIONS (1)
  - Hepatic encephalopathy [Recovered/Resolved]

NARRATIVE: CASE EVENT DATE: 20210320
